FAERS Safety Report 4726066-7 (Version None)
Quarter: 2005Q3

REPORT INFORMATION
  Report Type: 
  Country: None (occurrence: None)
  Receive Date: 20050725
  Receipt Date: 20050711
  Transmission Date: 20060218
  Serious: Yes (Hospitalization)
  Sender: FDA-Public Use
  Company Number: 2005093195

PATIENT
  Age: 51 Year
  Sex: Female

DRUGS (4)
  1. ZOLOFT [Suspect]
     Indication: DEPRESSION
     Dosage: 50 MG (50 MG, 1 IN 1 D), ORAL
     Route: 048
     Dates: start: 20030718, end: 20041120
  2. TRISEKVENS (ESTRADIOL, ESTRIOL, NORETHISTERONE ACETATE) [Concomitant]
  3. AERIUS (DESLORATADINE) [Concomitant]
  4. IMOVANE (ZOPLICLONE) [Concomitant]

REACTIONS (3)
  - ABNORMAL DREAMS [None]
  - SELF-INJURIOUS IDEATION [None]
  - SUICIDAL IDEATION [None]
